FAERS Safety Report 8041238-4 (Version None)
Quarter: 2012Q1

REPORT INFORMATION
  Report Type: 
  Country: None (occurrence: None)
  Receive Date: 20120109
  Receipt Date: 20120104
  Transmission Date: 20120608
  Serious: Yes (Other)
  Sender: FDA-Public Use
  Company Number: ACO_28532_2011

PATIENT
  Age: 39 Year
  Sex: Female

DRUGS (11)
  1. BACLOFEN [Concomitant]
  2. CELEBREX [Concomitant]
  3. LISINOPRIL [Concomitant]
  4. METHADONE HCL [Concomitant]
  5. AMPYRA [Suspect]
     Indication: PRODUCT USED FOR UNKNOWN INDICATION
     Dosage: 10 MG, Q 12 HRS
     Dates: start: 20111001, end: 20111001
  6. DEPAKOTE [Concomitant]
  7. TYLENOL /00020001/ (PARACETAMOL) [Concomitant]
  8. ZOLOFT [Concomitant]
  9. NEURONTIN [Concomitant]
  10. PERCOCET [Concomitant]
  11. ASPIRIN [Concomitant]

REACTIONS (9)
  - EYE MOVEMENT DISORDER [None]
  - NAUSEA [None]
  - LOSS OF CONSCIOUSNESS [None]
  - HYPERVENTILATION [None]
  - ADRENAL DISORDER [None]
  - URINARY INCONTINENCE [None]
  - CONVULSION [None]
  - MEMORY IMPAIRMENT [None]
  - DIZZINESS [None]
